FAERS Safety Report 7740208-0 (Version None)
Quarter: 2011Q3

REPORT INFORMATION
  Report Type: 
  Country: None (occurrence: None)
  Receive Date: 20110909
  Receipt Date: 20110909
  Transmission Date: 20111222
  Serious: Yes (Hospitalization, Other)
  Sender: FDA-Public Use
  Company Number: None

PATIENT
  Age: 67 Year
  Sex: Female
  Weight: 153.1 kg

DRUGS (19)
  1. ACYCLOVIR [Suspect]
  2. ASPIRIN [Concomitant]
  3. SENOKOT [Concomitant]
     Route: 048
  4. DILACOR XR [Concomitant]
     Route: 048
  5. ELMIRON [Concomitant]
     Route: 048
  6. VANCOMYCIN HCL [Concomitant]
     Route: 042
  7. ROCEPHIN [Concomitant]
     Route: 042
  8. LASIX [Concomitant]
  9. ZOFRAN [Concomitant]
  10. PREMARIN [Concomitant]
  11. LISINOPRIL [Concomitant]
  12. TIAZAC [Concomitant]
  13. HEPARIN [Concomitant]
  14. TYLENOL-500 [Concomitant]
     Route: 048
  15. VANCOMYCIN HCL [Concomitant]
     Route: 042
  16. COZAAR [Concomitant]
  17. VANCOMYCIN [Concomitant]
  18. COLACE [Concomitant]
     Route: 048
  19. SYNTHROID [Concomitant]
     Route: 048

REACTIONS (4)
  - MENTAL STATUS CHANGES [None]
  - NEUROTOXICITY [None]
  - INCORRECT DOSE ADMINISTERED [None]
  - BLOOD CREATININE INCREASED [None]
